FAERS Safety Report 21126148 (Version 3)
Quarter: 2022Q3

REPORT INFORMATION
  Report Type: Spontaneous
  Country: US (occurrence: US)
  Receive Date: 20220725
  Receipt Date: 20220906
  Transmission Date: 20221027
  Serious: No
  Sender: FDA-Public Use
  Company Number: US-TAKEDA-2022TUS049338

PATIENT
  Age: 61 Year
  Sex: Female

DRUGS (1)
  1. NINLARO [Suspect]
     Active Substance: IXAZOMIB CITRATE
     Indication: Product used for unknown indication
     Dosage: 4 MILLIGRAM
     Route: 048
     Dates: start: 202206

REACTIONS (3)
  - Nausea [Unknown]
  - Vomiting [Unknown]
  - Product administration error [Unknown]

NARRATIVE: CASE EVENT DATE: 20220711
